FAERS Safety Report 6175690-6 (Version None)
Quarter: 2009Q2

REPORT INFORMATION
  Report Type: 
  Country: None (occurrence: None)
  Receive Date: 20090427
  Receipt Date: 20080723
  Transmission Date: 20091009
  Serious: Yes (Other)
  Sender: FDA-Public Use
  Company Number: TEST00208003152

PATIENT
  Age: 2 Year
  Sex: Male
  Weight: 21 kg

DRUGS (3)
  1. ANDROGEL [Suspect]
     Indication: ACCIDENTAL EXPOSURE
     Dosage: DAILY TRANSCUTANEOUS DAILY DOSE
     Route: 062
     Dates: end: 20070101
  2. ANDROGEL [Suspect]
     Indication: ACCIDENTAL EXPOSURE
     Dosage: DAILY TRANSCUTANEOUS DAILY DOSE
     Route: 062
     Dates: start: 20080101
  3. INJECTABLE TESTOSTERONE (INJECTABLE TESTOSTERONE) [Concomitant]

REACTIONS (4)
  - BLOOD TESTOSTERONE INCREASED [None]
  - BODY HEIGHT ABOVE NORMAL [None]
  - PENIS DISORDER [None]
  - PRECOCIOUS PUBERTY [None]
